FAERS Safety Report 10617977 (Version 1)
Quarter: 2014Q4

REPORT INFORMATION
  Report Type: Spontaneous
  Country: GB (occurrence: GB)
  Receive Date: 20141201
  Receipt Date: 20141201
  Transmission Date: 20150529
  Serious: Yes (Other)
  Sender: FDA-Public Use
  Company Number: PHHY2014GB153677

PATIENT
  Age: 73 Year
  Sex: Male
  Weight: 85.72 kg

DRUGS (5)
  1. CLOPIDOGREL [Concomitant]
     Active Substance: CLOPIDOGREL BISULFATE
  2. INDAPAMIDE HEMIHYDRATE [Concomitant]
  3. COCODAMOL [Suspect]
     Active Substance: ACETAMINOPHEN\CODEINE PHOSPHATE
     Dosage: 230/300MG 3 OR 4 TIMES DAILY
     Route: 048
     Dates: start: 20140401
  4. PERINDOPRIL [Concomitant]
     Active Substance: PERINDOPRIL
  5. ROSUVASTATIN [Concomitant]
     Active Substance: ROSUVASTATIN

REACTIONS (2)
  - Nasal discomfort [Recovering/Resolving]
  - Rhinalgia [Recovering/Resolving]
